FAERS Safety Report 4280169-2 (Version None)
Quarter: 2004Q1

REPORT INFORMATION
  Report Type: 
  Country: None (occurrence: None)
  Receive Date: 20040126
  Receipt Date: 20040116
  Transmission Date: 20041129
  Serious: Yes (Other)
  Sender: FDA-Public Use
  Company Number: 2004-01-1021

PATIENT
  Sex: Male

DRUGS (3)
  1. BECLOMETHASONE DIPROPIONATE [Suspect]
     Indication: ASTHMA
  2. BUDESONIDE [Suspect]
     Indication: ASTHMA
  3. CORTICOSTEROID NOS [Suspect]
     Indication: ASTHMA
     Dosage: ORAL
     Route: 048

REACTIONS (1)
  - CATARACT SUBCAPSULAR [None]
